FAERS Safety Report 10513806 (Version 3)
Quarter: 2017Q1

REPORT INFORMATION
  Report Type: Spontaneous
  Country: US (occurrence: US)
  Receive Date: 20141013
  Receipt Date: 20170317
  Transmission Date: 20170428
  Serious: Yes (Other)
  Sender: FDA-Public Use
  Company Number: US-PFIZER INC-2014277383

PATIENT
  Sex: Male

DRUGS (1)
  1. GLUCOTROL [Suspect]
     Active Substance: GLIPIZIDE
     Dosage: UNK

REACTIONS (3)
  - Blindness [Unknown]
  - Visual acuity reduced [Unknown]
  - Blood glucose increased [Unknown]
